FAERS Safety Report 8486648-6 (Version None)
Quarter: 2012Q3

REPORT INFORMATION
  Report Type: 
  Country: None (occurrence: None)
  Receive Date: 20120703
  Receipt Date: 20120628
  Transmission Date: 20120928
  Serious: Yes (Death)
  Sender: FDA-Public Use
  Company Number: GB-ABBOTT-12P-167-0951143-00

PATIENT
  Sex: Female
  Weight: 60 kg

DRUGS (2)
  1. METHOTREXATE [Concomitant]
     Indication: PRODUCT USED FOR UNKNOWN INDICATION
  2. HUMIRA [Suspect]
     Indication: RHEUMATOID ARTHRITIS
     Route: 058
     Dates: start: 20070124, end: 20090209

REACTIONS (4)
  - PORTAL VEIN THROMBOSIS [None]
  - UPPER GASTROINTESTINAL HAEMORRHAGE [None]
  - SEPTIC SHOCK [None]
  - URINARY TRACT INFECTION [None]
